FAERS Safety Report 16627380 (Version 1)
Quarter: 2019Q3

REPORT INFORMATION
  Report Type: Spontaneous
  Country: US (occurrence: US)
  Receive Date: 20190724
  Receipt Date: 20190724
  Transmission Date: 20191004
  Serious: Yes (Other)
  Sender: FDA-Public Use
  Company Number: US-JNJFOC-20190722890

PATIENT
  Sex: Male

DRUGS (1)
  1. RISPERDAL [Suspect]
     Active Substance: RISPERIDONE
     Indication: PRODUCT USED FOR UNKNOWN INDICATION
     Route: 048
     Dates: start: 20101120, end: 20101228

REACTIONS (8)
  - Weight increased [Unknown]
  - Galactorrhoea [Unknown]
  - Diabetes mellitus [Unknown]
  - Hypogonadism [Unknown]
  - Bipolar disorder [Unknown]
  - Gynaecomastia [Unknown]
  - Libido decreased [Unknown]
  - Depression [Unknown]
